FAERS Safety Report 10221876 (Version 1)
Quarter: 2014Q2

REPORT INFORMATION
  Report Type: Spontaneous
  Country: RU (occurrence: RU)
  Receive Date: 20140606
  Receipt Date: 20140606
  Transmission Date: 20141212
  Serious: No
  Sender: FDA-Public Use
  Company Number: RU-BIOMARINAP-RU-2013-101621

PATIENT
  Sex: Female
  Weight: 48 kg

DRUGS (1)
  1. NAGLAZYME [Suspect]
     Indication: PRODUCT USED FOR UNKNOWN INDICATION
     Dosage: UNK
     Route: 041
     Dates: start: 20130926

REACTIONS (2)
  - Visual impairment [Unknown]
  - Ocular hyperaemia [Unknown]
